FAERS Safety Report 9804894 (Version 2)
Quarter: 2014Q1

REPORT INFORMATION
  Report Type: Other
  Country: IT (occurrence: IT)
  Receive Date: 20140108
  Receipt Date: 20140113
  Transmission Date: 20141002
  Serious: Yes (Hospitalization)
  Sender: FDA-Public Use
  Company Number: IT-BRISTOL-MYERS SQUIBB COMPANY-19978170

PATIENT
  Age: 63 Year
  Sex: Female

DRUGS (5)
  1. ARIPIPRAZOLE [Suspect]
     Indication: DEPRESSION
  2. OLANZAPINE [Interacting]
     Indication: DEPRESSION
     Dosage: PREVIOUSLY TWICE DAILY UNKNOWN DOSE.10MG EVERY NIGHT
  3. TRIAZOLAM [Concomitant]
  4. ALPRAZOLAM [Concomitant]
  5. PAROXETINE HCL [Concomitant]

REACTIONS (3)
  - Neuroleptic malignant syndrome [Recovered/Resolved]
  - Pneumonia [Recovered/Resolved]
  - Drug interaction [Unknown]
